FAERS Safety Report 18165577 (Version 1)
Quarter: 2020Q3

REPORT INFORMATION
  Report Type: Spontaneous
  Country: CN (occurrence: CN)
  Receive Date: 20200819
  Receipt Date: 20200819
  Transmission Date: 20201103
  Serious: Yes (Hospitalization, Other)
  Sender: FDA-Public Use
  Company Number: CN-ALKEM LABORATORIES LIMITED-CN-ALKEM-2020-04764

PATIENT
  Age: 72 Year
  Sex: Male

DRUGS (2)
  1. LEVAMLODIPINE [Concomitant]
     Active Substance: LEVAMLODIPINE
     Indication: HYPERTENSION
     Dosage: UNK
     Route: 065
  2. DABIGATRAN ETEXILATE MESYLATE [Suspect]
     Active Substance: DABIGATRAN ETEXILATE MESYLATE
     Indication: CEREBRAL ARTERY EMBOLISM
     Dosage: UNK
     Route: 065

REACTIONS (1)
  - Autoimmune haemolytic anaemia [Recovering/Resolving]
